FAERS Safety Report 13187742 (Version 2)
Quarter: 2017Q1

REPORT INFORMATION
  Report Type: Report from Study
  Country: US (occurrence: US)
  Receive Date: 20170206
  Receipt Date: 20170308
  Transmission Date: 20170428
  Serious: Yes (Death, Hospitalization, Other)
  Sender: FDA-Public Use
  Company Number: US-GILEAD-2017-0256261

PATIENT
  Age: 58 Year
  Sex: Male

DRUGS (3)
  1. AMBRISENTAN [Suspect]
     Active Substance: AMBRISENTAN
     Indication: HEART DISEASE CONGENITAL
  2. AMBRISENTAN [Suspect]
     Active Substance: AMBRISENTAN
     Indication: PULMONARY ARTERIAL HYPERTENSION
     Dosage: 10 MG, QD
     Route: 048
     Dates: start: 20140918, end: 20170105
  3. AMBRISENTAN [Suspect]
     Active Substance: AMBRISENTAN
     Indication: CONNECTIVE TISSUE DISORDER

REACTIONS (7)
  - Hepatorenal syndrome [Fatal]
  - Escherichia urinary tract infection [Unknown]
  - Hepatic cirrhosis [Fatal]
  - Hypokalaemia [Unknown]
  - Hepatitis C [Fatal]
  - Hypotension [Unknown]
  - Septic shock [Unknown]

NARRATIVE: CASE EVENT DATE: 20170127
